FAERS Safety Report 6419601-4 (Version None)
Quarter: 2009Q4

REPORT INFORMATION
  Report Type: 
  Country: None (occurrence: None)
  Receive Date: 20091029
  Receipt Date: 20091020
  Transmission Date: 20100525
  Serious: Yes (Disabling)
  Sender: FDA-Public Use
  Company Number: AU-AVENTIS-200921099GDDC

PATIENT
  Sex: Male
  Weight: 85 kg

DRUGS (2)
  1. ARAVA [Suspect]
     Indication: RHEUMATOID ARTHRITIS
     Dosage: DOSE QUANTITY: 20
     Route: 048
     Dates: start: 20080801, end: 20090801
  2. ARAVA [Suspect]
     Route: 048
     Dates: start: 20090301

REACTIONS (4)
  - DIARRHOEA [None]
  - NEUROPATHY PERIPHERAL [None]
  - PARAESTHESIA [None]
  - SINUS TACHYCARDIA [None]
